FAERS Safety Report 26068344 (Version 1)
Quarter: 2025Q4

REPORT INFORMATION
  Report Type: Spontaneous
  Country: US (occurrence: US)
  Receive Date: 20251120
  Receipt Date: 20251120
  Transmission Date: 20260117
  Serious: Yes (Life-Threatening, Hospitalization)
  Sender: ACCORD
  Company Number: US-MLMSERVICE-20251029-PI691125-00221-1

PATIENT
  Age: 60 Year
  Sex: Female

DRUGS (11)
  1. CLONAZEPAM [Suspect]
     Active Substance: CLONAZEPAM
     Dosage: EMPTY PRESCRIPTION BOTTLES
  2. LEVOTHYROXINE [Suspect]
     Active Substance: LEVOTHYROXINE
     Dosage: EMPTY PRESCRIPTION BOTTLES
  3. LISINOPRIL [Suspect]
     Active Substance: LISINOPRIL
     Dosage: EMPTY PRESCRIPTION BOTTLES
  4. METOPROLOL [Suspect]
     Active Substance: METOPROLOL
     Dosage: EMPTY PRESCRIPTION BOTTLES
  5. ONDANSETRON [Suspect]
     Active Substance: ONDANSETRON
     Dosage: EMPTY PRESCRIPTION BOTTLES
  6. ROSUVASTATIN CALCIUM [Suspect]
     Active Substance: ROSUVASTATIN CALCIUM
     Dosage: EMPTY PRESCRIPTION BOTTLES
  7. TRAZODONE HYDROCHLORIDE [Suspect]
     Active Substance: TRAZODONE HYDROCHLORIDE
     Dosage: EMPTY PRESCRIPTION BOTTLES
  8. DIPHENHYDRAMINE [Suspect]
     Active Substance: DIPHENHYDRAMINE
     Dosage: EMPTY PRESCRIPTION BOTTLES
  9. OMEPRAZOLE [Suspect]
     Active Substance: OMEPRAZOLE
     Dosage: EMPTY PRESCRIPTION BOTTLES
  10. PREGABALIN [Suspect]
     Active Substance: PREGABALIN
     Dosage: EMPTY PRESCRIPTION BOTTLES
  11. VENLAFAXINE [Suspect]
     Active Substance: VENLAFAXINE HYDROCHLORIDE
     Dosage: EMPTY PRESCRIPTION BOTTLES

REACTIONS (9)
  - Ventricular tachycardia [Recovering/Resolving]
  - Intestinal ischaemia [Recovering/Resolving]
  - Pneumonia aspiration [Recovering/Resolving]
  - Acute kidney injury [Recovering/Resolving]
  - Ischaemic hepatitis [Recovering/Resolving]
  - Cardiogenic shock [Recovering/Resolving]
  - Cardio-respiratory arrest [Recovering/Resolving]
  - Intentional overdose [Unknown]
  - Depressed level of consciousness [Recovering/Resolving]
